FAERS Safety Report 16482231 (Version 3)
Quarter: 2019Q3

REPORT INFORMATION
  Report Type: Spontaneous
  Country: FR (occurrence: FR)
  Receive Date: 20190627
  Receipt Date: 20190730
  Transmission Date: 20191004
  Serious: Yes (Disabling, Other)
  Sender: FDA-Public Use
  Company Number: FR-B.I. PHARMACEUTICALS,INC./RIDGEFIELD-2019-BI-027528

PATIENT
  Age: 81 Year
  Sex: Male
  Weight: 75 kg

DRUGS (9)
  1. PRADAXA [Suspect]
     Active Substance: DABIGATRAN ETEXILATE MESYLATE
     Indication: CARDIAC VALVE DISEASE
  2. DECAPEPTYL [Concomitant]
     Indication: PROSTATE CANCER
     Route: 065
     Dates: start: 20181217
  3. TAHOR [Concomitant]
     Active Substance: ATORVASTATIN CALCIUM
     Indication: HYPERCHOLESTEROLAEMIA
     Route: 048
     Dates: start: 20100127
  4. ATACAND [Concomitant]
     Active Substance: CANDESARTAN CILEXETIL
     Indication: HYPERTENSION
     Route: 048
     Dates: start: 20100127
  5. PRADAXA [Suspect]
     Active Substance: DABIGATRAN ETEXILATE MESYLATE
     Indication: ATRIAL FIBRILLATION
     Route: 048
     Dates: start: 20100611, end: 201906
  6. PRADAXA [Suspect]
     Active Substance: DABIGATRAN ETEXILATE MESYLATE
     Indication: ARRHYTHMIA
     Route: 048
     Dates: start: 201906
  7. ESIDREX [Concomitant]
     Active Substance: HYDROCHLOROTHIAZIDE
     Indication: HYPERTENSION
     Route: 048
     Dates: start: 20100127
  8. FLECAINE [Concomitant]
     Active Substance: FLECAINIDE
     Indication: HEART RATE ABNORMAL
     Route: 048
     Dates: start: 20100611
  9. CASODEX [Concomitant]
     Active Substance: BICALUTAMIDE
     Indication: PROSTATE CANCER
     Route: 048
     Dates: start: 20181217

REACTIONS (3)
  - Increased tendency to bruise [Not Recovered/Not Resolved]
  - Prostate cancer metastatic [Recovered/Resolved with Sequelae]
  - Product use issue [Recovered/Resolved]

NARRATIVE: CASE EVENT DATE: 20181126
